FAERS Safety Report 6031300-X (Version None)
Quarter: 2008Q4

REPORT INFORMATION
  Report Type: 
  Country: None (occurrence: None)
  Receive Date: 20081222
  Receipt Date: 20081017
  Transmission Date: 20090506
  Serious: No
  Sender: FDA-Public Use
  Company Number: US-WYE-H06480308

PATIENT
  Age: 56 Year
  Sex: Female
  Weight: 108.96 kg

DRUGS (6)
  1. PRISTIQ [Suspect]
     Indication: DEPRESSION
     Dosage: 50 MG 1X PER 1 DAY, ORAL
     Route: 048
     Dates: start: 20081001
  2. JANUVIA (SITAGLIPTIN) [Concomitant]
  3. TORSEMIDE [Concomitant]
  4. HYDROCODONE (HYDROCODONE) [Concomitant]
  5. MORPHINE [Concomitant]
  6. VALIUM [Concomitant]

REACTIONS (1)
  - OEDEMA PERIPHERAL [None]
